FAERS Safety Report 4358288-1 (Version None)
Quarter: 2004Q2

REPORT INFORMATION
  Report Type: 
  Country: None (occurrence: None)
  Receive Date: 20040514
  Receipt Date: 20040504
  Transmission Date: 20050107
  Serious: Yes (Hospitalization)
  Sender: FDA-Public Use
  Company Number: FR-BRISTOL-MYERS SQUIBB COMPANY-12578886

PATIENT
  Age: 56 Year
  Sex: Male

DRUGS (8)
  1. BRISTOPEN INJ 1 G [Suspect]
     Indication: STAPHYLOCOCCAL SEPSIS
     Route: 042
     Dates: start: 20040205, end: 20040209
  2. EQUANIL [Concomitant]
     Dates: start: 20040205, end: 20040209
  3. GENTAMICIN [Concomitant]
     Dates: start: 20040205, end: 20040209
  4. ACETAMINOPHEN [Concomitant]
     Dates: start: 20040205, end: 20040209
  5. TOPALGIC [Concomitant]
     Dates: start: 20040205, end: 20040209
  6. RIVOTRIL [Concomitant]
     Dates: start: 20040205, end: 20040209
  7. INSULATARD NPH HUMAN [Concomitant]
     Dates: start: 20040205
  8. ACTRAPID [Concomitant]
     Dates: start: 20040205

REACTIONS (1)
  - HEPATITIS [None]
